FAERS Safety Report 24982575 (Version 1)
Quarter: 2025Q1

REPORT INFORMATION
  Report Type: Spontaneous
  Country: CN (occurrence: CN)
  Receive Date: 20250218
  Receipt Date: 20250218
  Transmission Date: 20250409
  Serious: Yes (Hospitalization)
  Sender: FOUNDATION CONSUMER HEALTHCARE
  Company Number: CN-RICHTER-2025-GR-001528

PATIENT
  Sex: Female

DRUGS (1)
  1. LEVONORGESTREL [Suspect]
     Active Substance: LEVONORGESTREL
     Indication: Post coital contraception
     Route: 048
     Dates: start: 20250207, end: 20250207

REACTIONS (2)
  - Erythema [None]
  - Intermenstrual bleeding [None]

NARRATIVE: CASE EVENT DATE: 20250201
